FAERS Safety Report 4760624-9 (Version None)
Quarter: 2005Q3

REPORT INFORMATION
  Report Type: 
  Country: None (occurrence: None)
  Receive Date: 20050902
  Receipt Date: 20050824
  Transmission Date: 20060218
  Serious: Yes (Death)
  Sender: FDA-Public Use
  Company Number: FR-NOVOPROD-246478

PATIENT
  Age: 68 Year
  Sex: Female

DRUGS (1)
  1. NOVOSEVEN [Suspect]
     Indication: HAEMORRHAGIC DISORDER
     Dosage: 4.8 MG, UNK
     Dates: start: 20050616, end: 20050616

REACTIONS (1)
  - POSTOPERATIVE THROMBOSIS [None]
